FAERS Safety Report 6991482-X (Version None)
Quarter: 2010Q3

REPORT INFORMATION
  Report Type: 
  Country: None (occurrence: None)
  Receive Date: 20100916
  Receipt Date: 20090828
  Transmission Date: 20110219
  Serious: Yes (Other)
  Sender: FDA-Public Use
  Company Number: US-WYE-H10760009

PATIENT
  Sex: Female

DRUGS (4)
  1. PRISTIQ [Suspect]
     Indication: DEPRESSION
     Route: 048
     Dates: start: 20090811
  2. MESALAZINE [Concomitant]
     Indication: COELIAC DISEASE
     Dosage: UNKNOWN
  3. MESALAZINE [Concomitant]
     Indication: COLITIS ULCERATIVE
  4. ATENOLOL [Concomitant]
     Indication: HYPERTENSION
     Dosage: UNKNOWN
     Route: 048

REACTIONS (5)
  - CONDITION AGGRAVATED [None]
  - DIZZINESS [None]
  - HYPERTENSION [None]
  - NAUSEA [None]
  - VOMITING [None]
